FAERS Safety Report 7438160-0 (Version None)
Quarter: 2011Q2

REPORT INFORMATION
  Report Type: 
  Country: None (occurrence: None)
  Receive Date: 20110426
  Receipt Date: 20110413
  Transmission Date: 20111010
  Serious: Yes (Hospitalization, Other)
  Sender: FDA-Public Use
  Company Number: US-CELGENEUS-163-21880-11041758

PATIENT
  Sex: Male

DRUGS (4)
  1. CIPRO [Concomitant]
     Route: 065
     Dates: start: 20101201
  2. CIPRO [Concomitant]
  3. RYTHMOL [Concomitant]
     Route: 065
     Dates: start: 20101201
  4. REVLIMID [Suspect]
     Indication: MULTIPLE MYELOMA
     Dosage: 10 MILLIGRAM
     Route: 048
     Dates: start: 20100801

REACTIONS (3)
  - PANCYTOPENIA [None]
  - ATRIAL FIBRILLATION [None]
  - VENOUS STENOSIS [None]
